FAERS Safety Report 13726194 (Version 1)
Quarter: 2017Q3

REPORT INFORMATION
  Report Type: Spontaneous
  Country: US (occurrence: US)
  Receive Date: 20170707
  Receipt Date: 20170707
  Transmission Date: 20171127
  Serious: No
  Sender: FDA-Public Use
  Company Number: US-GLAXOSMITHKLINE-US2017104134

PATIENT
  Age: 51 Year
  Sex: Male

DRUGS (12)
  1. NUCALA [Suspect]
     Active Substance: MEPOLIZUMAB
     Indication: ASTHMA
     Dosage: UNK UNK, CYC
     Route: 042
     Dates: start: 20170417
  2. AMOXICILLIN. [Concomitant]
     Active Substance: AMOXICILLIN
  3. CARDIZEM [Concomitant]
     Active Substance: DILTIAZEM HYDROCHLORIDE
  4. PREDNISONE. [Concomitant]
     Active Substance: PREDNISONE
  5. ATROPINE. [Concomitant]
     Active Substance: ATROPINE
  6. PRILOSEC [Concomitant]
     Active Substance: OMEPRAZOLE MAGNESIUM
  7. XARELTO [Concomitant]
     Active Substance: RIVAROXABAN
  8. SINGULAIR [Concomitant]
     Active Substance: MONTELUKAST SODIUM
  9. SOTALOL. [Concomitant]
     Active Substance: SOTALOL
  10. BUDESONIDE. [Concomitant]
     Active Substance: BUDESONIDE
  11. ARFORMOTEROL [Concomitant]
     Active Substance: ARFORMOTEROL
  12. RAMIPRIL. [Concomitant]
     Active Substance: RAMIPRIL

REACTIONS (2)
  - Drug dose omission [Unknown]
  - Condition aggravated [Unknown]

NARRATIVE: CASE EVENT DATE: 20170520
